FAERS Safety Report 10206896 (Version 2)
Quarter: 2014Q2

REPORT INFORMATION
  Report Type: Spontaneous
  Country: JP (occurrence: JP)
  Receive Date: 20140530
  Receipt Date: 20140612
  Transmission Date: 20141212
  Serious: Yes (Hospitalization)
  Sender: FDA-Public Use
  Company Number: JP-PFIZER INC-2014144294

PATIENT
  Age: 55 Year
  Sex: Male

DRUGS (7)
  1. SUGLAT [Suspect]
     Dosage: 50 MG, 1X/DAY
     Route: 048
     Dates: start: 20140426
  2. CADUET [Concomitant]
     Dosage: UNK
     Route: 048
  3. MICAMLO [Concomitant]
     Dosage: UNK
     Route: 048
  4. ACTOS [Concomitant]
     Dosage: 15 MG, 1X/DAY
     Route: 048
  5. NESINA [Concomitant]
     Dosage: 25 MG, 1X/DAY
     Route: 048
  6. LOXONIN [Concomitant]
     Dosage: 180 MG, 1X/DAY
     Route: 048
  7. MUCOSTA [Concomitant]
     Dosage: 300 MG, 1X/DAY
     Route: 048

REACTIONS (4)
  - Orthostatic hypotension [Unknown]
  - Altered state of consciousness [Recovering/Resolving]
  - Fall [Recovered/Resolved]
  - Contusion [Unknown]
